FAERS Safety Report 9345005 (Version 1)
Quarter: 2013Q2

REPORT INFORMATION
  Report Type: Spontaneous
  Country: IT (occurrence: IT)
  Receive Date: 20130612
  Receipt Date: 20130612
  Transmission Date: 20140414
  Serious: Yes (Other)
  Sender: FDA-Public Use
  Company Number: IT-TEVA-411085ISR

PATIENT
  Age: 56 Year
  Sex: Female

DRUGS (1)
  1. OXALIPLATINO TEVA 5MG/ML [Suspect]
     Indication: ADENOCARCINOMA OF COLON
     Dosage: 150 MILLIGRAM DAILY;
     Route: 041
     Dates: start: 20130605, end: 20130605

REACTIONS (5)
  - Hypotension [Recovering/Resolving]
  - Tachycardia [Recovering/Resolving]
  - Bronchospasm [Recovering/Resolving]
  - Tremor [Recovering/Resolving]
  - Chest discomfort [Recovering/Resolving]
